FAERS Safety Report 17065087 (Version 2)
Quarter: 2020Q1

REPORT INFORMATION
  Report Type: Spontaneous
  Country: US (occurrence: US)
  Receive Date: 20191122
  Receipt Date: 20200123
  Transmission Date: 20200409
  Serious: No
  Sender: FDA-Public Use
  Company Number: US-SA-2019SA321232

PATIENT
  Sex: Female

DRUGS (3)
  1. ZOLOFT [Concomitant]
     Active Substance: SERTRALINE HYDROCHLORIDE
  2. AUBAGIO [Suspect]
     Active Substance: TERIFLUNOMIDE
     Dosage: 14 MG, QD
     Route: 048
  3. VITAMIN D NOS [Concomitant]
     Active Substance: VITAMIN D NOS
     Dosage: 2000 UNK

REACTIONS (5)
  - Headache [Not Recovered/Not Resolved]
  - Surgery [Unknown]
  - Nightmare [Not Recovered/Not Resolved]
  - Product dose omission [Not Recovered/Not Resolved]
  - Gastric disorder [Not Recovered/Not Resolved]
